FAERS Safety Report 4553191-6 (Version None)
Quarter: 2005Q1

REPORT INFORMATION
  Report Type: 
  Country: None (occurrence: None)
  Receive Date: 20050113
  Receipt Date: 20050104
  Transmission Date: 20050727
  Serious: Yes (Hospitalization, Other)
  Sender: FDA-Public Use
  Company Number: HQWYE326009NOV04

PATIENT
  Age: 44 Year
  Sex: Male
  Weight: 61.8 kg

DRUGS (6)
  1. PROTONIX [Suspect]
     Indication: UPPER GASTROINTESTINAL HAEMORRHAGE
     Dosage: 40 MG BOLUS, INTRAVENOUS;  8 MG 1X PER 1 HR, INTRAVENOUS
     Route: 040
     Dates: start: 20040530, end: 20040530
  2. PROTONIX [Suspect]
     Indication: UPPER GASTROINTESTINAL HAEMORRHAGE
     Dosage: 40 MG BOLUS, INTRAVENOUS;  8 MG 1X PER 1 HR, INTRAVENOUS
     Route: 040
     Dates: start: 20040530, end: 20040606
  3. LORAZEPAM [Concomitant]
  4. MIDAZOLAM HCL [Concomitant]
  5. POTASSIUM CHLORIDE [Concomitant]
  6. DALTEPARIN SODIUM (HEPARIN-FRACTION, SODIUM SALT) [Concomitant]

REACTIONS (1)
  - PHLEBITIS [None]
